FAERS Safety Report 10264269 (Version 1)
Quarter: 2014Q2

REPORT INFORMATION
  Report Type: Other
  Country: DE (occurrence: DE)
  Receive Date: 20140627
  Receipt Date: 20140627
  Transmission Date: 20141212
  Serious: No
  Sender: FDA-Public Use
  Company Number: DE-LUPIN PHARMACEUTICALS INC.-E2B_00001828

PATIENT
  Sex: Female
  Weight: 82 kg

DRUGS (7)
  1. SIMVASTATIN [Suspect]
     Indication: HYPERCHOLESTEROLAEMIA
     Route: 065
     Dates: start: 2006
  2. CRANOC [Suspect]
     Indication: HYPERCHOLESTEROLAEMIA
     Route: 065
     Dates: start: 2007
  3. SORTIS [Suspect]
     Indication: HYPERCHOLESTEROLAEMIA
     Route: 065
     Dates: start: 2007
  4. BEFIBRAT [Suspect]
     Indication: HYPERCHOLESTEROLAEMIA
     Route: 065
     Dates: start: 2009
  5. EZETROL [Suspect]
     Indication: HYPERCHOLESTEROLAEMIA
     Route: 065
     Dates: start: 2011
  6. ATORVASTATIN [Suspect]
     Indication: HYPERCHOLESTEROLAEMIA
     Route: 065
     Dates: start: 2013
  7. CHOLESTAGEL [Suspect]
     Indication: HYPERCHOLESTEROLAEMIA
     Route: 065
     Dates: start: 2013

REACTIONS (1)
  - Drug intolerance [Unknown]
